FAERS Safety Report 5732203-8 (Version None)
Quarter: 2008Q2

REPORT INFORMATION
  Report Type: 
  Country: None (occurrence: None)
  Receive Date: 20080508
  Receipt Date: 20080429
  Transmission Date: 20081010
  Serious: Yes (Hospitalization)
  Sender: FDA-Public Use
  Company Number: US-BAXTER-2008BH004607

PATIENT
  Age: 6 Week
  Sex: Male

DRUGS (30)
  1. ADVATE [Suspect]
     Indication: FACTOR VIII DEFICIENCY
     Route: 042
     Dates: start: 20051103, end: 20051101
  2. ADVATE [Suspect]
     Indication: PROPHYLAXIS
     Route: 042
     Dates: start: 20051103, end: 20051101
  3. ADVATE [Suspect]
     Route: 042
     Dates: start: 20051101
  4. ADVATE [Suspect]
     Route: 042
     Dates: start: 20051101
  5. ADVATE [Suspect]
     Route: 042
     Dates: start: 20051101
  6. ADVATE [Suspect]
     Route: 042
     Dates: start: 20051101
  7. ADVATE [Suspect]
     Route: 042
     Dates: start: 20051101
  8. ADVATE [Suspect]
     Route: 042
     Dates: start: 20051101
  9. ADVATE [Suspect]
     Route: 042
     Dates: start: 20051205
  10. ADVATE [Suspect]
     Route: 042
     Dates: start: 20051205
  11. ADVATE [Suspect]
     Route: 042
     Dates: start: 20051205
  12. ADVATE [Suspect]
     Route: 042
     Dates: start: 20051205
  13. ADVATE [Suspect]
     Route: 042
     Dates: start: 20051219, end: 20051219
  14. ADVATE [Suspect]
     Route: 042
     Dates: start: 20051219, end: 20051219
  15. ADVATE [Suspect]
     Route: 042
     Dates: start: 20051225, end: 20051225
  16. ADVATE [Suspect]
     Route: 042
     Dates: start: 20051225, end: 20051225
  17. ADVATE [Suspect]
     Route: 042
     Dates: start: 20051229
  18. ADVATE [Suspect]
     Route: 042
     Dates: start: 20051229
  19. ADVATE [Suspect]
     Route: 042
     Dates: start: 20060501, end: 20060501
  20. ADVATE [Suspect]
     Route: 042
     Dates: start: 20060501, end: 20060501
  21. ADVATE [Suspect]
     Route: 042
     Dates: start: 20060925, end: 20060925
  22. ADVATE [Suspect]
     Route: 042
     Dates: start: 20060925, end: 20060925
  23. ADVATE [Suspect]
     Route: 042
     Dates: start: 20070129, end: 20070129
  24. ADVATE [Suspect]
     Route: 042
     Dates: start: 20070129, end: 20070129
  25. ADVATE [Suspect]
     Route: 042
     Dates: start: 20070521, end: 20070521
  26. ADVATE [Suspect]
     Route: 042
     Dates: start: 20070521, end: 20070521
  27. ADVATE [Suspect]
     Route: 042
     Dates: start: 20071016, end: 20071016
  28. ADVATE [Suspect]
     Route: 042
     Dates: start: 20071016, end: 20071016
  29. ADVATE [Suspect]
     Route: 042
     Dates: start: 20071112
  30. ADVATE [Suspect]
     Route: 042
     Dates: start: 20071112

REACTIONS (6)
  - ACTIVATED PARTIAL THROMBOPLASTIN TIME SHORTENED [None]
  - CATHETER RELATED INFECTION [None]
  - FACTOR VIII INHIBITION [None]
  - HAEMARTHROSIS [None]
  - INJECTION SITE SWELLING [None]
  - OEDEMA PERIPHERAL [None]
